FAERS Safety Report 5504585-3 (Version None)
Quarter: 2007Q4

REPORT INFORMATION
  Report Type: 
  Country: None (occurrence: None)
  Receive Date: 20071101
  Receipt Date: 20071030
  Transmission Date: 20080405
  Serious: Yes (Life-Threatening)
  Sender: FDA-Public Use
  Company Number: CA-ROXANE LABORATORIES, INC-2007-DE-06391GD

PATIENT

DRUGS (3)
  1. MORPHINE [Suspect]
     Indication: POSTOPERATIVE ANALGESIA
  2. SEVOFLURANE [Concomitant]
     Indication: MAINTENANCE OF ANAESTHESIA
  3. ANALGESICS [Concomitant]
     Indication: ANALGESIA

REACTIONS (2)
  - DRUG LEVEL INCREASED [None]
  - RESPIRATORY DEPRESSION [None]
